FAERS Safety Report 25384640 (Version 1)
Quarter: 2025Q2

REPORT INFORMATION
  Report Type: Spontaneous
  Country: BE (occurrence: BE)
  Receive Date: 20250602
  Receipt Date: 20250602
  Transmission Date: 20250717
  Serious: Yes (Other)
  Sender: GLAXOSMITHKLINE
  Company Number: BE-GSKCCFEMEA-Case-02368088_AE-98951

PATIENT

DRUGS (1)
  1. ZEJULA [Suspect]
     Active Substance: NIRAPARIB
     Indication: Ovarian cancer
     Dates: start: 202206, end: 202505

REACTIONS (3)
  - Myelodysplastic syndrome [Unknown]
  - Malignant neoplasm progression [Unknown]
  - Product use issue [Unknown]
